FAERS Safety Report 8955971 (Version 1)
Quarter: 2012Q4

REPORT INFORMATION
  Report Type: 
  Country: US (occurrence: US)
  Receive Date: 20121210
  Receipt Date: 20121210
  Transmission Date: 20130627
  Serious: Yes (Other)
  Sender: FDA-Public Use
  Company Number: PHEH2012US023212

PATIENT
  Sex: Female

DRUGS (3)
  1. DIOVAN HCT [Suspect]
     Dosage: 1 DF(320/25 mg), daily
     Route: 048
  2. LEXAPRO [Concomitant]
  3. ZYRTEC [Concomitant]

REACTIONS (6)
  - Rheumatoid arthritis [Not Recovered/Not Resolved]
  - Gastrooesophageal reflux disease [Unknown]
  - Head discomfort [Unknown]
  - Hypersensitivity [Unknown]
  - Rash [Unknown]
  - Headache [Unknown]
